FAERS Safety Report 8832876 (Version 1)
Quarter: 2012Q4

REPORT INFORMATION
  Report Type: Spontaneous
  Country: US (occurrence: None)
  Receive Date: 20121009
  Receipt Date: 20121009
  Transmission Date: 20130627
  Serious: Yes (Other)
  Sender: FDA-Public Use
  Company Number: None

PATIENT
  Age: 69 Year
  Sex: Female
  Weight: 78.7 kg

DRUGS (1)
  1. OXALIPLATIN [Suspect]
     Route: 042

REACTIONS (10)
  - Loss of consciousness [None]
  - Sneezing [None]
  - Feeling hot [None]
  - Pulse absent [None]
  - Pallor [None]
  - Vomiting [None]
  - Pruritus [None]
  - Flushing [None]
  - Infusion related reaction [None]
  - Paraesthesia oral [None]
